FAERS Safety Report 13803485 (Version 1)
Quarter: 2017Q3

REPORT INFORMATION
  Report Type: Spontaneous
  Country: PT (occurrence: PT)
  Receive Date: 20170728
  Receipt Date: 20170728
  Transmission Date: 20171127
  Serious: Yes (Hospitalization)
  Sender: FDA-Public Use
  Company Number: PT-ACCORD-056568

PATIENT
  Age: 53 Year
  Sex: Female
  Weight: 63 kg

DRUGS (9)
  1. DOCETAXEL ACCORD [Suspect]
     Active Substance: DOCETAXEL
     Indication: BREAST CANCER
     Dosage: STRENGTH: 80 MG / 4ML
     Route: 042
     Dates: start: 20170327
  2. PARACETAMOL [Concomitant]
     Active Substance: ACETAMINOPHEN
     Route: 048
  3. ONDANSETRON [Concomitant]
     Active Substance: ONDANSETRON
     Dosage: PREMEDICATION OF CHEMOTHERAPY
     Route: 042
  4. CLOXAZOLAM [Concomitant]
     Active Substance: CLOXAZOLAM
     Route: 048
  5. LISINOPRIL. [Concomitant]
     Active Substance: LISINOPRIL
     Route: 048
  6. PREDNISOLONE. [Concomitant]
     Active Substance: PREDNISOLONE
     Route: 048
  7. METAMIZOLE SODIUM [Concomitant]
     Active Substance: METAMIZOLE SODIUM
     Route: 048
  8. RANITIDINE. [Concomitant]
     Active Substance: RANITIDINE
     Dosage: PREMEDICATION OF CHEMOTHERAPY.
     Route: 042
  9. CLEMASTINE [Concomitant]
     Active Substance: CLEMASTINE
     Dosage: PREMEDICATION OF CHEMOTHERAPY.
     Route: 042

REACTIONS (3)
  - Pigmentation disorder [Recovered/Resolved]
  - Flushing [Recovered/Resolved]
  - Skin exfoliation [Recovered/Resolved]

NARRATIVE: CASE EVENT DATE: 20170404
